FAERS Safety Report 9750360 (Version 2)
Quarter: 2013Q4

REPORT INFORMATION
  Report Type: Spontaneous
  Country: US (occurrence: US)
  Receive Date: 20131212
  Receipt Date: 20131213
  Transmission Date: 20140711
  Serious: Yes (Other)
  Sender: FDA-Public Use
  Company Number: US-TEVA-398208USA

PATIENT
  Sex: Female
  Weight: 54.03 kg

DRUGS (3)
  1. PARAGARD 380A [Suspect]
     Indication: CONTRACEPTION
     Route: 015
     Dates: start: 20130115, end: 20130508
  2. ZYRTEC [Concomitant]
     Indication: HYPERSENSITIVITY
  3. ACCUTANE [Concomitant]
     Indication: ACNE

REACTIONS (2)
  - Device dislocation [Recovered/Resolved]
  - Drug effect decreased [Unknown]
